FAERS Safety Report 25545447 (Version 1)
Quarter: 2025Q3

REPORT INFORMATION
  Report Type: Spontaneous
  Country: US (occurrence: US)
  Receive Date: 20250711
  Receipt Date: 20250711
  Transmission Date: 20251021
  Serious: Yes (Other)
  Sender: PURDUE
  Company Number: US-PURDUE-USA-2025-0318825

PATIENT
  Age: 11 Year
  Sex: Male

DRUGS (5)
  1. DEXTROAMPHETAMINE SACCHARATE, AMPHETAMINE ASPARTATE, DEXTROAMPHETAMINE [Suspect]
     Active Substance: AMPHETAMINE ASPARTATE\AMPHETAMINE SULFATE\DEXTROAMPHETAMINE SACCHARATE\DEXTROAMPHETAMINE SULFATE
     Indication: Attention deficit hyperactivity disorder
     Dosage: 10 MILLIGRAM, DAILY
     Route: 048
  2. METHYLPHENIDATE [Suspect]
     Active Substance: METHYLPHENIDATE
     Indication: Attention deficit hyperactivity disorder
     Route: 065
  3. DEXTROAMPHETAMINE SULFATE [Suspect]
     Active Substance: DEXTROAMPHETAMINE SULFATE
     Indication: Attention deficit hyperactivity disorder
     Route: 065
  4. CLONIDINE [Suspect]
     Active Substance: CLONIDINE
     Indication: Symptomatic treatment
     Route: 065
  5. ESCITALOPRAM [Suspect]
     Active Substance: ESCITALOPRAM OXALATE
     Indication: Symptomatic treatment
     Dosage: 5 MILLIGRAM, DAILY
     Route: 065

REACTIONS (9)
  - Self-destructive behaviour [Unknown]
  - Psychomotor hyperactivity [Unknown]
  - Frustration tolerance decreased [Unknown]
  - Negativism [Unknown]
  - Impulsive behaviour [Unknown]
  - Affect lability [Unknown]
  - Aggression [Recovering/Resolving]
  - Irritability [Unknown]
  - Anxiety [Recovering/Resolving]
